FAERS Safety Report 4323838-8 (Version None)
Quarter: 2004Q1

REPORT INFORMATION
  Report Type: 
  Country: None (occurrence: None)
  Receive Date: 20040323
  Receipt Date: 20040309
  Transmission Date: 20041129
  Serious: Yes (Hospitalization)
  Sender: FDA-Public Use
  Company Number: AU-JNJFOC-20040303542

PATIENT
  Age: 70 Year
  Sex: Male

DRUGS (3)
  1. TRAMADOL HCL [Suspect]
     Indication: BACK PAIN
     Dosage: 300 MG, IN 1 DAY
     Dates: start: 20030808, end: 20030909
  2. DUCLOFENAC (DICLOFENAC) [Concomitant]
     Indication: BACK PAIN
     Dates: start: 20030905, end: 20030909
  3. CELECOXIB (CELECOXIB) [Suspect]
     Indication: BACK PAIN
     Dates: start: 20030905, end: 20030909

REACTIONS (3)
  - CONFUSIONAL STATE [None]
  - PULMONARY OEDEMA [None]
  - SOMNOLENCE [None]
